FAERS Safety Report 6193867-0 (Version None)
Quarter: 2009Q2

REPORT INFORMATION
  Report Type: 
  Country: None (occurrence: None)
  Receive Date: 20090518
  Receipt Date: 20090513
  Transmission Date: 20091009
  Serious: Yes (Hospitalization)
  Sender: FDA-Public Use
  Company Number: ES-PFIZER INC-2009207579

PATIENT
  Age: 91 Year

DRUGS (6)
  1. ALDACTONE [Suspect]
     Indication: CARDIAC FAILURE
     Dosage: 50 MG/DAY
     Route: 048
     Dates: start: 20070101, end: 20080505
  2. ENALAPRIL MALEATE [Interacting]
     Indication: CARDIAC FAILURE
     Dosage: 5 MG/DAY
     Route: 048
     Dates: start: 20070101, end: 20080505
  3. DIGOXIN [Concomitant]
     Indication: CARDIAC FAILURE
     Dosage: UNK
     Route: 048
  4. FUROSEMIDE [Concomitant]
     Indication: CARDIAC FAILURE
     Dosage: 40 MG/DAY
     Route: 048
  5. ADIRO [Concomitant]
     Indication: VENOUS INSUFFICIENCY
     Dosage: 300 MG/DAY
     Route: 048
  6. VENOSMIL [Concomitant]
     Indication: VENOUS INSUFFICIENCY
     Dosage: 400 MG/DAY
     Route: 048

REACTIONS (3)
  - DRUG INTERACTION [None]
  - HYPERKALAEMIA [None]
  - RENAL FAILURE ACUTE [None]
